FAERS Safety Report 17771437 (Version 2)
Quarter: 2020Q2

REPORT INFORMATION
  Report Type: Spontaneous
  Country: GB (occurrence: GB)
  Receive Date: 20200512
  Receipt Date: 20200520
  Transmission Date: 20200714
  Serious: No
  Sender: FDA-Public Use
  Company Number: GB-PFIZER INC-2020169687

PATIENT
  Age: 7 Year
  Sex: Male

DRUGS (2)
  1. GENOTROPIN [Suspect]
     Active Substance: SOMATROPIN
     Indication: GROWTH HORMONE DEFICIENCY
     Dosage: 0.6 MG, 1X/DAY FOR 4 NIGHTS
     Route: 058
  2. GENOTROPIN [Suspect]
     Active Substance: SOMATROPIN
     Dosage: 0.8 MG, 1X/DAY FOR 3 NIGHTS
     Route: 058

REACTIONS (2)
  - Product dose omission [Unknown]
  - Device issue [Unknown]
